FAERS Safety Report 9656274 (Version 4)
Quarter: 2014Q3

REPORT INFORMATION
  Report Type: Spontaneous
  Country: US (occurrence: US)
  Receive Date: 20131030
  Receipt Date: 20140828
  Transmission Date: 20150326
  Serious: Yes (Death, Hospitalization, Other)
  Sender: FDA-Public Use
  Company Number: US-009507513-1310USA010048

PATIENT
  Sex: Female
  Weight: 65.76 kg

DRUGS (3)
  1. ALENDRONATE SODIUM. [Suspect]
     Active Substance: ALENDRONATE SODIUM
     Indication: OSTEOARTHRITIS
     Dosage: 70 MG, UNK
     Dates: start: 2008, end: 2009
  2. FOSAMAX [Suspect]
     Active Substance: ALENDRONATE SODIUM
     Indication: OSTEOPOROSIS
     Dosage: 70 MG, UNK
     Route: 048
     Dates: start: 1998, end: 2011
  3. FOSAMAX [Suspect]
     Active Substance: ALENDRONATE SODIUM
     Dosage: 10 MG, QW
     Route: 048

REACTIONS (33)
  - Lower limb fracture [Unknown]
  - Sciatica [Unknown]
  - Bone disorder [Unknown]
  - Death [Fatal]
  - Hip arthroplasty [Unknown]
  - Coronary arterial stent insertion [Unknown]
  - Hypertension [Unknown]
  - Open reduction of fracture [Unknown]
  - Humerus fracture [Unknown]
  - Breast cancer [Unknown]
  - Skin cancer [Unknown]
  - Hip arthroplasty [Unknown]
  - Device failure [Unknown]
  - Off label use [Unknown]
  - Open reduction of fracture [Unknown]
  - Osteoarthritis [Unknown]
  - Cataract operation [Unknown]
  - Inappropriate schedule of drug administration [Unknown]
  - Knee arthroplasty [Unknown]
  - Oedema [Unknown]
  - Hyperlipidaemia [Unknown]
  - Malignant melanoma [Unknown]
  - Myocardial infarction [Unknown]
  - Osteonecrosis [Unknown]
  - Tonsillectomy [Unknown]
  - Malignant breast lump removal [Unknown]
  - Sinus bradycardia [Unknown]
  - Femur fracture [Recovered/Resolved]
  - Osteoarthritis [Unknown]
  - Coronary artery disease [Unknown]
  - QRS axis abnormal [Unknown]
  - Osteoarthritis [Unknown]
  - Haematocrit decreased [Unknown]

NARRATIVE: CASE EVENT DATE: 199806
